FAERS Safety Report 4972995-9 (Version None)
Quarter: 2006Q2

REPORT INFORMATION
  Report Type: 
  Country: None (occurrence: None)
  Receive Date: 20060414
  Receipt Date: 20060217
  Transmission Date: 20061013
  Serious: Yes (Life-Threatening, Hospitalization, Other)
  Sender: FDA-Public Use
  Company Number: AU-GLAXOSMITHKLINE-B0414434A

PATIENT
  Age: 60 Year
  Sex: Female
  Weight: 92 kg

DRUGS (11)
  1. AVANDIA [Suspect]
     Indication: DIABETES MELLITUS NON-INSULIN-DEPENDENT
     Route: 048
     Dates: start: 20050409, end: 20060201
  2. FEMARA [Suspect]
     Indication: PROPHYLAXIS
     Route: 065
     Dates: start: 20050910, end: 20060201
  3. AMARYL [Concomitant]
     Indication: DIABETES MELLITUS NON-INSULIN-DEPENDENT
     Dosage: 4MG PER DAY
     Route: 048
     Dates: start: 20000101
  4. METFORMIN [Concomitant]
     Indication: DIABETES MELLITUS NON-INSULIN-DEPENDENT
     Dosage: 1G THREE TIMES PER DAY
     Route: 048
     Dates: start: 19960101
  5. THYROXINE [Concomitant]
     Indication: HYPOTHYROIDISM
     Dosage: 100MG PER DAY
     Route: 048
     Dates: start: 19900101
  6. LISINOPRIL [Concomitant]
     Indication: HYPERTENSION
     Dosage: 5MG PER DAY
     Route: 048
     Dates: start: 19980101
  7. NOTEN [Concomitant]
     Indication: HYPERTENSION
     Dosage: 25MG PER DAY
     Route: 048
     Dates: start: 20000101
  8. PLAVIX [Concomitant]
     Indication: HYPERTENSION
     Dosage: 75MG PER DAY
  9. SOMAC [Concomitant]
     Indication: HERNIA
     Dosage: 20MG PER DAY
     Route: 048
  10. PREDNISOLONE [Concomitant]
     Indication: LUNG INFILTRATION
     Dosage: 10MG PER DAY
     Route: 048
     Dates: start: 20060201
  11. EZETROL [Concomitant]
     Indication: MYOCARDIAL ISCHAEMIA
     Dosage: 10MG PER DAY
     Route: 048
     Dates: start: 20060101

REACTIONS (4)
  - DYSPNOEA [None]
  - FLUID OVERLOAD [None]
  - PULMONARY OEDEMA [None]
  - WEIGHT INCREASED [None]
